FAERS Safety Report 8158989-3 (Version None)
Quarter: 2012Q1

REPORT INFORMATION
  Report Type: 
  Country: None (occurrence: None)
  Receive Date: 20120223
  Receipt Date: 20120221
  Transmission Date: 20120608
  Serious: No
  Sender: FDA-Public Use
  Company Number: US-PFIZER INC-2012046980

PATIENT
  Age: 33 Year
  Sex: Female
  Weight: 99.773 kg

DRUGS (2)
  1. CHANTIX [Suspect]
     Indication: SMOKING CESSATION THERAPY
     Dosage: UNK
     Route: 048
     Dates: start: 20110101, end: 20110101
  2. SEROQUEL [Concomitant]
     Dosage: UNK, DAILY

REACTIONS (1)
  - ABNORMAL DREAMS [None]
